FAERS Safety Report 12928948 (Version 2)
Quarter: 2016Q4

REPORT INFORMATION
  Report Type: Report from Study
  Country: CA (occurrence: CA)
  Receive Date: 20161110
  Receipt Date: 20161121
  Transmission Date: 20170207
  Serious: Yes (Other)
  Sender: FDA-Public Use
  Company Number: PHHY2016CA150961

PATIENT
  Age: 55 Year
  Sex: Female

DRUGS (5)
  1. METHOTREXATE. [Concomitant]
     Active Substance: METHOTREXATE
     Indication: PRODUCT USED FOR UNKNOWN INDICATION
     Route: 065
  2. COSENTYX [Suspect]
     Active Substance: SECUKINUMAB
     Dosage: 300 MG, QW
     Route: 058
     Dates: start: 20161022
  3. COSENTYX [Suspect]
     Active Substance: SECUKINUMAB
     Indication: PSORIASIS
     Dosage: 300 MG, QW
     Route: 058
     Dates: start: 20161007
  4. CALCIPOTRIENE AND BETAMETHASONE DIPROPIONATE [Concomitant]
     Active Substance: BETAMETHASONE DIPROPIONATE\CALCIPOTRIENE
     Indication: PRODUCT USED FOR UNKNOWN INDICATION
     Route: 065
  5. COSENTYX [Suspect]
     Active Substance: SECUKINUMAB
     Dosage: 300 MG, QW
     Route: 058
     Dates: start: 20161028, end: 20161028

REACTIONS (14)
  - Psoriasis [Unknown]
  - Skin fissures [Unknown]
  - Nail bed bleeding [Unknown]
  - Body temperature decreased [Unknown]
  - Cellulitis [Recovered/Resolved]
  - Gait disturbance [Unknown]
  - Pruritus [Unknown]
  - Peripheral swelling [Unknown]
  - Pain in extremity [Unknown]
  - Discomfort [Unknown]
  - Erythema [Unknown]
  - Drug ineffective [Unknown]
  - Limb discomfort [Unknown]
  - Wound [Unknown]

NARRATIVE: CASE EVENT DATE: 20161024
